FAERS Safety Report 8037095-2 (Version None)
Quarter: 2012Q1

REPORT INFORMATION
  Report Type: 
  Country: None (occurrence: None)
  Receive Date: 20120111
  Receipt Date: 20120104
  Transmission Date: 20120608
  Serious: Yes (Hospitalization)
  Sender: FDA-Public Use
  Company Number: US-GLAXOSMITHKLINE-B0752851A

PATIENT
  Age: 66 Year
  Sex: Female
  Weight: 77.3 kg

DRUGS (7)
  1. AVANDIA [Suspect]
     Indication: DIABETES MELLITUS
     Dosage: 8MG PER DAY
     Route: 048
     Dates: start: 20010101, end: 20070101
  2. NEURONTIN [Concomitant]
  3. HYDROCHLOROTHIAZIDE [Concomitant]
  4. NEXIUM [Concomitant]
  5. SINGULAIR [Concomitant]
  6. CARDIZEM [Concomitant]
  7. LIPITOR [Concomitant]

REACTIONS (6)
  - ATRIAL FIBRILLATION [None]
  - BRADYCARDIA [None]
  - SYNCOPE [None]
  - DIZZINESS [None]
  - PALPITATIONS [None]
  - CARDIAC DISORDER [None]
